FAERS Safety Report 17075799 (Version 6)
Quarter: 2020Q3

REPORT INFORMATION
  Report Type: Spontaneous
  Country: US (occurrence: US)
  Receive Date: 20191126
  Receipt Date: 20200930
  Transmission Date: 20201102
  Serious: Yes (Other)
  Sender: FDA-Public Use
  Company Number: US-PFIZER INC-2019510220

PATIENT
  Age: 66 Year
  Sex: Female

DRUGS (2)
  1. SKELAXIN [Suspect]
     Active Substance: METAXALONE
     Indication: BACK PAIN
     Dosage: 800 MG, 3X/DAY (AS NEEDED)
     Route: 048
  2. SKELAXIN [Suspect]
     Active Substance: METAXALONE
     Indication: MUSCLE SPASMS
     Dosage: 800 MG, 3X/DAY (AS NEEDED)
     Route: 048
     Dates: start: 20200928

REACTIONS (3)
  - Asthma [Unknown]
  - Colitis ulcerative [Unknown]
  - Autoimmune thyroiditis [Unknown]
